FAERS Safety Report 6541318-6 (Version None)
Quarter: 2010Q1

REPORT INFORMATION
  Report Type: 
  Country: None (occurrence: None)
  Receive Date: 20100118
  Receipt Date: 20100106
  Transmission Date: 20100710
  Serious: Yes (Other)
  Sender: FDA-Public Use
  Company Number: US-ELI_LILLY_AND_COMPANY-US201001000948

PATIENT
  Age: 52 Year
  Sex: Female
  Weight: 68.027 kg

DRUGS (12)
  1. ZYPREXA [Suspect]
  2. PROZAC [Suspect]
     Dosage: 1 D/F, UNK
  3. PROZAC [Suspect]
     Dosage: 5 MG, UNK
  4. GEODON [Concomitant]
     Indication: EMOTIONAL DISTRESS
     Dosage: 20 MG, 2/D
     Route: 048
     Dates: start: 20091119
  5. GEODON [Concomitant]
     Dosage: 20 MG, UNK
  6. GEODON [Concomitant]
     Dosage: 40 MG, UNK
  7. GEODON [Concomitant]
     Dosage: 60 MG, UNK
  8. GEODON [Concomitant]
     Dosage: 80 MG, UNK
  9. GEODON [Concomitant]
     Dosage: 60 MG, UNK
  10. NEURONTIN [Concomitant]
     Indication: NEURALGIA
     Dosage: 100 MG, 3/D
     Dates: start: 20091119
  11. LYRICA [Concomitant]
  12. DEXLANSOPRAZOLE [Concomitant]
     Indication: ABDOMINAL DISCOMFORT
     Dosage: 60 MG, DAILY (1/D)
     Dates: start: 20080101

REACTIONS (8)
  - ADVERSE DRUG REACTION [None]
  - DYSPHONIA [None]
  - FATIGUE [None]
  - GAIT DISTURBANCE [None]
  - IRRITABILITY [None]
  - MUSCLE SPASMS [None]
  - MUSCLE TIGHTNESS [None]
  - THROAT TIGHTNESS [None]
